FAERS Safety Report 15597543 (Version 2)
Quarter: 2018Q4

REPORT INFORMATION
  Report Type: Spontaneous
  Country: US (occurrence: US)
  Receive Date: 20181108
  Receipt Date: 20181116
  Transmission Date: 20190205
  Serious: No
  Sender: FDA-Public Use
  Company Number: US-TEVA-2018-US-970672

PATIENT
  Age: 93 Year
  Sex: Female

DRUGS (1)
  1. DILTIAZEM TEVA [Suspect]
     Active Substance: DILTIAZEM
     Route: 065

REACTIONS (3)
  - Drug ineffective [Unknown]
  - Headache [Unknown]
  - Nervousness [Unknown]
